FAERS Safety Report 16860857 (Version 1)
Quarter: 2019Q3

REPORT INFORMATION
  Report Type: Spontaneous
  Country: PL (occurrence: PL)
  Receive Date: 20190927
  Receipt Date: 20190927
  Transmission Date: 20191005
  Serious: Yes (Hospitalization)
  Sender: FDA-Public Use
  Company Number: PL-ACTELION-A-CH2019-196123

PATIENT

DRUGS (5)
  1. CEFTRIAXONE. [Suspect]
     Active Substance: CEFTRIAXONE
     Indication: MATERNAL EXPOSURE DURING PREGNANCY
     Route: 064
  2. EPOPROSTENOL SODIUM. [Suspect]
     Active Substance: EPOPROSTENOL SODIUM
     Indication: MATERNAL EXPOSURE DURING PREGNANCY
     Route: 064
  3. SILDENAFIL. [Suspect]
     Active Substance: SILDENAFIL
     Indication: MATERNAL EXPOSURE DURING PREGNANCY
     Route: 064
  4. ILOPROST. [Suspect]
     Active Substance: ILOPROST
     Indication: MATERNAL EXPOSURE DURING PREGNANCY
     Route: 064
  5. DILTIAZEM. [Suspect]
     Active Substance: DILTIAZEM
     Indication: MATERNAL EXPOSURE DURING PREGNANCY
     Route: 064

REACTIONS (2)
  - Maternal exposure during pregnancy [Unknown]
  - Premature baby [Unknown]
